FAERS Safety Report 10518688 (Version 1)
Quarter: 2014Q4

REPORT INFORMATION
  Report Type: Spontaneous
  Country: US (occurrence: None)
  Receive Date: 20141014
  Receipt Date: 20141014
  Transmission Date: 20150528
  Serious: Yes (Other)
  Sender: FDA-Public Use
  Company Number: None

PATIENT
  Age: 56 Year
  Sex: Male
  Weight: 107.3 kg

DRUGS (1)
  1. ALBUMIN [Suspect]
     Active Substance: ALBUMIN (HUMAN)
     Dosage: ~18OCT2013 THRU N/A
     Dates: start: 20131018

REACTIONS (2)
  - Urticaria [None]
  - Dyspnoea [None]

NARRATIVE: CASE EVENT DATE: 20131018
